FAERS Safety Report 14229614 (Version 1)
Quarter: 2017Q4

REPORT INFORMATION
  Report Type: Spontaneous
  Country: SI (occurrence: SI)
  Receive Date: 20171128
  Receipt Date: 20171128
  Transmission Date: 20180321
  Serious: Yes (Other)
  Sender: FDA-Public Use
  Company Number: PHHY2017SI169916

PATIENT
  Age: 3 Year
  Sex: Female

DRUGS (2)
  1. OSPEN [Suspect]
     Active Substance: PENICILLIN V
     Indication: SCARLET FEVER
     Route: 065
  2. OSPEN [Suspect]
     Active Substance: PENICILLIN V
     Indication: SCARLET FEVER
     Dosage: 0.5 DF, Q8H
     Route: 065

REACTIONS (3)
  - Angina pectoris [Unknown]
  - Wrong technique in product usage process [Unknown]
  - Dysphagia [Unknown]
